FAERS Safety Report 4317367-5 (Version None)
Quarter: 2004Q1

REPORT INFORMATION
  Report Type: 
  Country: None (occurrence: None)
  Receive Date: 20040312
  Receipt Date: 20040304
  Transmission Date: 20041129
  Serious: Yes (Other)
  Sender: FDA-Public Use
  Company Number: 2003-08-0460

PATIENT
  Age: 1 Day

DRUGS (3)
  1. PEG-INTRON [Suspect]
     Indication: HEPATITIS C
     Dosage: 150 MCG QWK SUBCUTANEOUS
     Route: 058
     Dates: start: 20030802
  2. REBETOL [Suspect]
     Indication: HEPATITIS
     Dosage: 1200 MG QD ORAL
     Route: 048
     Dates: start: 20030802
  3. VICODIN [Concomitant]

REACTIONS (4)
  - ASTHMA [None]
  - PREMATURE BABY [None]
  - RESPIRATORY DISORDER NEONATAL [None]
  - TRANSMISSION OF DRUG VIA SEMEN [None]
